FAERS Safety Report 15471756 (Version 1)
Quarter: 2018Q4

REPORT INFORMATION
  Report Type: Report from Study
  Country: US (occurrence: US)
  Receive Date: 20181008
  Receipt Date: 20181008
  Transmission Date: 20190205
  Serious: Yes (Hospitalization)
  Sender: FDA-Public Use
  Company Number: US-IPSEN BIOPHARMACEUTICALS, INC.-2018-13797

PATIENT
  Age: 55 Year
  Sex: Female
  Weight: 33.3 kg

DRUGS (3)
  1. DOXYCYCLINE. [Concomitant]
     Active Substance: DOXYCYCLINE
     Indication: URINARY TRACT INFECTION
     Dates: start: 20180913, end: 20180917
  2. MM-398 [Suspect]
     Active Substance: IRINOTECAN SUCROSOFATE
     Indication: NEOPLASM
     Dosage: 50 MG/M2
     Route: 042
     Dates: start: 20160725, end: 20180917
  3. VANCOMYCIN [Concomitant]
     Active Substance: VANCOMYCIN
     Indication: URINARY TRACT INFECTION
     Route: 042

REACTIONS (1)
  - Urinary tract infection staphylococcal [Not Recovered/Not Resolved]

NARRATIVE: CASE EVENT DATE: 20180917
